FAERS Safety Report 6393218-2 (Version None)
Quarter: 2009Q4

REPORT INFORMATION
  Report Type: 
  Country: None (occurrence: None)
  Receive Date: 20091008
  Receipt Date: 20091005
  Transmission Date: 20100525
  Serious: Yes (Hospitalization)
  Sender: FDA-Public Use
  Company Number: US-BRISTOL-MYERS SQUIBB COMPANY-14806327

PATIENT
  Age: 57 Year
  Sex: Male

DRUGS (5)
  1. COUMADIN [Suspect]
     Indication: PULMONARY EMBOLISM
     Route: 065
  2. XELODA [Suspect]
     Indication: COLON CANCER
     Dosage: 5 CYC
     Route: 048
     Dates: start: 20090601
  3. AVASTIN [Suspect]
     Indication: COLON CANCER
     Route: 042
     Dates: start: 20080101
  4. ATENOLOL [Concomitant]
  5. GABAPENTIN [Concomitant]

REACTIONS (3)
  - BLEEDING TIME PROLONGED [None]
  - COAGULOPATHY [None]
  - RENAL HAEMORRHAGE [None]
